FAERS Safety Report 5520725-4 (Version None)
Quarter: 2007Q4

REPORT INFORMATION
  Report Type: 
  Country: None (occurrence: None)
  Receive Date: 20071119
  Receipt Date: 20071105
  Transmission Date: 20080405
  Serious: Yes (Other)
  Sender: FDA-Public Use
  Company Number: US-PFIZER INC-2007094968

PATIENT

DRUGS (1)
  1. CHANTIX [Suspect]

REACTIONS (7)
  - DIZZINESS [None]
  - FEAR [None]
  - FLATULENCE [None]
  - INSOMNIA [None]
  - MALAISE [None]
  - UNEVALUABLE EVENT [None]
  - WRONG TECHNIQUE IN DRUG USAGE PROCESS [None]
